FAERS Safety Report 18203278 (Version 1)
Quarter: 2020Q3

REPORT INFORMATION
  Report Type: Spontaneous
  Country: FR (occurrence: FR)
  Receive Date: 20200827
  Receipt Date: 20200827
  Transmission Date: 20201103
  Serious: Yes (Hospitalization)
  Sender: FDA-Public Use
  Company Number: ALC2020FR006651

PATIENT

DRUGS (1)
  1. ATROPINE ALCON 0,3% COLLYRE [Suspect]
     Active Substance: ATROPINE SULFATE
     Indication: EYE OEDEMA
     Dosage: 2 DRP, OT
     Route: 047
     Dates: start: 20200520, end: 20200522

REACTIONS (3)
  - Anticholinergic syndrome [Recovered/Resolved]
  - Agitation [Recovered/Resolved]
  - Hyperthermia [Recovered/Resolved]

NARRATIVE: CASE EVENT DATE: 20200521
